FAERS Safety Report 7040053-8 (Version None)
Quarter: 2010Q4

REPORT INFORMATION
  Report Type: 
  Country: None (occurrence: None)
  Receive Date: 20101006
  Receipt Date: 20100927
  Transmission Date: 20110411
  Serious: Yes (Other)
  Sender: FDA-Public Use
  Company Number: 2010US004056

PATIENT
  Age: 8 Year
  Sex: Male

DRUGS (2)
  1. PROGRAF [Suspect]
     Indication: RENAL TRANSPLANT
     Dosage: 1 MG, BID
  2. SIROLIMUS (TACROLIMUS) [Concomitant]

REACTIONS (2)
  - OBSTRUCTIVE UROPATHY [None]
  - URINARY TRACT INFECTION [None]
